FAERS Safety Report 16626166 (Version 3)
Quarter: 2019Q3

REPORT INFORMATION
  Report Type: Spontaneous
  Country: US (occurrence: US)
  Receive Date: 20190724
  Receipt Date: 20190905
  Transmission Date: 20191004
  Serious: No
  Sender: FDA-Public Use
  Company Number: US-GILEAD-2019-0419729

PATIENT
  Age: 56 Year
  Sex: Male
  Weight: 96.6 kg

DRUGS (6)
  1. SOFOSBUVIR;VELPATASVIR [Suspect]
     Active Substance: SOFOSBUVIR\VELPATASVIR
     Indication: CHRONIC HEPATITIS C
     Dosage: TAKE 1 TABLET BY MOUTH EVERY MORNING
     Route: 048
     Dates: start: 201907
  2. POLYETHYLENE GLYCOL 3350. [Concomitant]
     Active Substance: POLYETHYLENE GLYCOL 3350
     Dosage: UNKNOWN
  3. HYDROCODONE/ACETAMINOPHEN [Concomitant]
     Active Substance: ACETAMINOPHEN\HYDROCODONE
     Dosage: UNKNOWN
  4. TOBRAMYCIN. [Concomitant]
     Active Substance: TOBRAMYCIN
  5. GABAPENTIN. [Concomitant]
     Active Substance: GABAPENTIN
     Dosage: UNKNOWN
  6. MAVYRET [Concomitant]
     Active Substance: GLECAPREVIR\PIBRENTASVIR

REACTIONS (4)
  - Muscle tightness [Recovering/Resolving]
  - Back pain [Recovering/Resolving]
  - Myalgia [Recovering/Resolving]
  - Muscle spasms [Recovering/Resolving]

NARRATIVE: CASE EVENT DATE: 20190719
